FAERS Safety Report 8760026 (Version 1)
Quarter: 2012Q4

REPORT INFORMATION
  Report Type: 
  Country: BR (occurrence: BR)
  Receive Date: 20120829
  Receipt Date: 20120829
  Transmission Date: 20130627
  Serious: Yes (Hospitalization, Other)
  Sender: FDA-Public Use
  Company Number: PHHY2012BR074081

PATIENT
  Age: 61 Year
  Sex: Male

DRUGS (8)
  1. DIOVAN HCT [Suspect]
     Indication: HYPERTENSION
     Dosage: 1 DF (160/25 mg), Daily
  2. ACEBROFYLLINE [Concomitant]
     Indication: ANTASTHMATIC DRUG LEVEL THERAPEUTIC
     Dosage: 10 ml, TID
     Route: 048
  3. BEROTEC [Concomitant]
     Indication: ASTHMA
     Dosage: 10 drp, TID
  4. BEROTEC [Concomitant]
     Dosage: 10 drp, Five times daily
  5. BEROTEC [Concomitant]
     Dosage: 10 drp, PRN
  6. AVODART [Concomitant]
     Indication: PROSTATIC DISORDER
     Dosage: 1 DF (0.5 mg), Daily
     Dates: start: 201207, end: 201207
  7. SIMVASTATIN [Concomitant]
     Indication: BLOOD CHOLESTEROL
     Dosage: 1 DF (20 mg), Daily
  8. SERENOA REPENS [Concomitant]
     Indication: PROSTATIC DISORDER
     Dosage: 1 DF (325 mg), Daily
     Dates: start: 201208

REACTIONS (6)
  - Pneumonia [Recovered/Resolved]
  - Cholelithiasis [Recovered/Resolved]
  - Erosive oesophagitis [Recovering/Resolving]
  - Gastrooesophageal reflux disease [Not Recovered/Not Resolved]
  - Asthma [Recovering/Resolving]
  - Benign prostatic hyperplasia [Not Recovered/Not Resolved]
